FAERS Safety Report 7339170-4 (Version None)
Quarter: 2011Q1

REPORT INFORMATION
  Report Type: 
  Country: None (occurrence: None)
  Receive Date: 20110228
  Receipt Date: 20110214
  Transmission Date: 20110831
  Serious: Yes (Hospitalization, Disabling)
  Sender: FDA-Public Use
  Company Number: 2011SP000497

PATIENT
  Age: 74 Year
  Sex: Male
  Weight: 73.5 kg

DRUGS (9)
  1. VITAMIN A [Concomitant]
  2. XOPENEX [Suspect]
     Indication: CHRONIC OBSTRUCTIVE PULMONARY DISEASE
     Dosage: 1.25 MG/3ML; PRN; INHALATION
     Route: 055
  3. AMIODARONE HCL [Concomitant]
  4. PROLOSEC /00661201/ [Concomitant]
  5. ALBUTEROL [Concomitant]
  6. WARFARIN SODIUM [Concomitant]
  7. SIMVASTATIN [Concomitant]
  8. QUINAPRIL [Concomitant]
  9. IRON [Concomitant]

REACTIONS (5)
  - RESPIRATORY TRACT CONGESTION [None]
  - GAIT DISTURBANCE [None]
  - NASOPHARYNGITIS [None]
  - INCREASED UPPER AIRWAY SECRETION [None]
  - MUSCULOSKELETAL CHEST PAIN [None]
